FAERS Safety Report 21604528 (Version 1)
Quarter: 2022Q4

REPORT INFORMATION
  Report Type: Report from Study
  Country: US (occurrence: US)
  Receive Date: 20221116
  Receipt Date: 20221116
  Transmission Date: 20230113
  Serious: No
  Sender: FDA-Public Use
  Company Number: US-ABBVIE-4169193

PATIENT
  Age: 34 Year
  Sex: Female

DRUGS (6)
  1. SKYRIZI [Suspect]
     Active Substance: RISANKIZUMAB-RZAA
     Indication: Guttate psoriasis
     Dosage: 150 MG
     Route: 058
  2. SKYRIZI [Suspect]
     Active Substance: RISANKIZUMAB-RZAA
     Indication: Psoriasis
  3. TYLENOL 325 MG TABLET [Concomitant]
     Indication: Product used for unknown indication
  4. KLONOPIN 2 MG TABLET [Concomitant]
     Indication: Product used for unknown indication
  5. DOXEPIN HCL 150 MG CAPSULE [Concomitant]
     Indication: Product used for unknown indication
  6. ABILIFY 10 MG TABLET [Concomitant]
     Indication: Product used for unknown indication

REACTIONS (1)
  - SARS-CoV-2 test positive [Unknown]

NARRATIVE: CASE EVENT DATE: 20221001
